FAERS Safety Report 16797190 (Version 2)
Quarter: 2019Q4

REPORT INFORMATION
  Report Type: Spontaneous
  Country: JP (occurrence: JP)
  Receive Date: 20190912
  Receipt Date: 20191009
  Transmission Date: 20200122
  Serious: Yes (Death, Other)
  Sender: FDA-Public Use
  Company Number: JP-AMGEN-JPNSP2019149239

PATIENT
  Age: 68 Year
  Sex: Female

DRUGS (1)
  1. RANMARK [Suspect]
     Active Substance: DENOSUMAB
     Indication: METASTASES TO BONE
     Dosage: UNK
     Route: 058
     Dates: start: 20150907, end: 20170724

REACTIONS (2)
  - Death [Fatal]
  - Osteonecrosis of jaw [Not Recovered/Not Resolved]

NARRATIVE: CASE EVENT DATE: 20170420
